FAERS Safety Report 4991268-1 (Version None)
Quarter: 2006Q2

REPORT INFORMATION
  Report Type: 
  Country: None (occurrence: None)
  Receive Date: 20060428
  Receipt Date: 20060413
  Transmission Date: 20061013
  Serious: Yes (Hospitalization, Other)
  Sender: FDA-Public Use
  Company Number: US200604002432

PATIENT
  Age: 68 Year
  Sex: Male

DRUGS (10)
  1. CYMBALTA [Suspect]
     Indication: DEPRESSION
     Dosage: SEE IMAGE
     Dates: start: 20051101, end: 20051201
  2. CYMBALTA [Suspect]
     Indication: DEPRESSION
     Dosage: SEE IMAGE
     Dates: start: 20051201, end: 20060101
  3. VICODIN [Concomitant]
  4. NABUMETONE [Concomitant]
  5. ALTACE [Concomitant]
  6. GLIPIZIDE [Concomitant]
  7. MAGNESIUM SULFATE [Concomitant]
  8. SINGULAIR [Concomitant]
  9. ASPIRIN [Concomitant]
  10. STOOL SOFTENER (DOCUSATE SODIUM) [Concomitant]

REACTIONS (14)
  - AMNESIA [None]
  - CHILLS [None]
  - CONSTIPATION [None]
  - DISTURBANCE IN ATTENTION [None]
  - DIVERTICULITIS [None]
  - GASTROOESOPHAGEAL REFLUX DISEASE [None]
  - GINGIVAL BLEEDING [None]
  - HEPATIC ENZYME INCREASED [None]
  - LARGE INTESTINAL ULCER [None]
  - MOOD SWINGS [None]
  - RECTAL HAEMORRHAGE [None]
  - SELF INJURIOUS BEHAVIOUR [None]
  - THINKING ABNORMAL [None]
  - TREMOR [None]
